FAERS Safety Report 5007282-6 (Version None)
Quarter: 2006Q2

REPORT INFORMATION
  Report Type: 
  Country: None (occurrence: None)
  Receive Date: 20060519
  Receipt Date: 20060519
  Transmission Date: 20061013
  Serious: Yes (Other)
  Sender: FDA-Public Use
  Company Number: None

PATIENT
  Sex: Female

DRUGS (1)
  1. HUMIRA [Suspect]
     Indication: RHEUMATOID ARTHRITIS
     Dosage: 40MG QOW SQ
     Route: 058

REACTIONS (4)
  - GENERALISED ERYTHEMA [None]
  - INNER EAR DISORDER [None]
  - PRURITUS [None]
  - URTICARIA [None]
